FAERS Safety Report 19096645 (Version 2)
Quarter: 2021Q2

REPORT INFORMATION
  Report Type: Spontaneous
  Country: US (occurrence: US)
  Receive Date: 20210406
  Receipt Date: 20210417
  Transmission Date: 20210717
  Serious: Yes (Hospitalization)
  Sender: FDA-Public Use
  Company Number: US-ROCHE-2804860

PATIENT
  Sex: Male

DRUGS (1)
  1. ESBRIET [Suspect]
     Active Substance: PIRFENIDONE
     Indication: INTERSTITIAL LUNG DISEASE
     Dosage: 1 CAPSULE BY MOUTH 3 TIMES DAILY FOR WEEK 1 AND TWO CAPSULES THREE TIMES DAILY WEEK 2 AND THEN THREE
     Route: 048
     Dates: start: 20210326

REACTIONS (6)
  - Nausea [Not Recovered/Not Resolved]
  - Agitation [Not Recovered/Not Resolved]
  - Pneumonia [Unknown]
  - Decreased appetite [Not Recovered/Not Resolved]
  - Diarrhoea [Not Recovered/Not Resolved]
  - Insomnia [Not Recovered/Not Resolved]
